FAERS Safety Report 7984172-8 (Version None)
Quarter: 2011Q4

REPORT INFORMATION
  Report Type: 
  Country: None (occurrence: None)
  Receive Date: 20111213
  Receipt Date: 20110830
  Transmission Date: 20120403
  Serious: Yes (Other)
  Sender: FDA-Public Use
  Company Number: FK201101844

PATIENT
  Age: 5 Decade
  Sex: Female

DRUGS (5)
  1. FLUOROURACIL [Suspect]
     Indication: METASTASES TO LUNG
     Dosage: 500 MG/M2
  2. DOCETAXEL [Suspect]
     Indication: METASTASES TO LUNG
     Dosage: 60 MG/M2, 4 MG
  3. EPIRUBICIN [Suspect]
     Indication: METASTASES TO LUNG
     Dosage: 60 MG/M2, 4 MG
  4. CYCLOPHOSPHAMIDE [Suspect]
     Indication: METASTASES TO LUNG
     Dosage: 500 MG/M2
  5. PACLITAXEL [Suspect]
     Indication: METASTASES TO LUNG
     Dosage: 210 MG/M2

REACTIONS (5)
  - NEUTROPENIA [None]
  - MALAISE [None]
  - FATIGUE [None]
  - NEUROPATHY PERIPHERAL [None]
  - HYPERVENTILATION [None]
